FAERS Safety Report 6841445-X (Version None)
Quarter: 2010Q3

REPORT INFORMATION
  Report Type: 
  Country: None (occurrence: None)
  Receive Date: 20100714
  Receipt Date: 20070706
  Transmission Date: 20110219
  Serious: No
  Sender: FDA-Public Use
  Company Number: US-PFIZER INC-2007057801

PATIENT
  Sex: Female
  Weight: 89.8 kg

DRUGS (9)
  1. CHANTIX [Suspect]
     Indication: SMOKING CESSATION THERAPY
     Route: 048
     Dates: start: 20070703
  2. PLAVIX [Concomitant]
  3. IMDUR [Concomitant]
  4. COREG [Concomitant]
  5. NORTRIPTYLINE [Concomitant]
  6. ALTACE [Concomitant]
  7. LOVASTATIN [Concomitant]
  8. SYNTHROID [Concomitant]
  9. PERCOCET [Concomitant]
     Dates: end: 20070705

REACTIONS (2)
  - DIZZINESS [None]
  - NAUSEA [None]
